FAERS Safety Report 4598172-1 (Version None)
Quarter: 2005Q1

REPORT INFORMATION
  Report Type: 
  Country: None (occurrence: None)
  Receive Date: 20050301
  Receipt Date: 20050301
  Transmission Date: 20050727
  Serious: Yes (Other)
  Sender: FDA-Public Use
  Company Number: None

PATIENT
  Sex: Male
  Weight: 87.7 kg

DRUGS (7)
  1. GEMCITABINE 1500 MG/M2 IV OVER 150 MIN Q WK X3 EVERY 4 WEEKS [Suspect]
     Dosage: 1500 MG/M2 IV OVER 150 MIN Q WK X3 EVERY 4 WEEKS
     Route: 042
     Dates: start: 20040406
  2. ENDOCET [Concomitant]
  3. NEXIUM [Concomitant]
  4. AMBIEN [Concomitant]
  5. ATIVAN [Concomitant]
  6. OXYCONTIN [Concomitant]
  7. ZOFRAN [Concomitant]

REACTIONS (7)
  - ANAEMIA [None]
  - ATRIOVENTRICULAR BLOCK FIRST DEGREE [None]
  - CHEST PAIN [None]
  - QRS AXIS ABNORMAL [None]
  - THROMBOCYTOPENIA [None]
  - TROPONIN INCREASED [None]
  - VENTRICULAR HYPERTROPHY [None]
